FAERS Safety Report 4400895-1 (Version None)
Quarter: 2004Q3

REPORT INFORMATION
  Report Type: 
  Country: None (occurrence: None)
  Receive Date: 20040907
  Receipt Date: 20030729
  Transmission Date: 20050211
  Serious: No
  Sender: FDA-Public Use
  Company Number: US-BRISTOL-MYERS SQUIBB COMPANY-12337523

PATIENT
  Age: 79 Year
  Sex: Female

DRUGS (18)
  1. COUMADIN [Suspect]
     Route: 048
  2. LOVENOX [Suspect]
     Dates: end: 20030421
  3. RISPERIDONE [Concomitant]
  4. FLUPHENAZINE DECANOATE [Concomitant]
  5. BENZATROPINE [Concomitant]
  6. VITAMIN B6 [Concomitant]
  7. ACETAMINOPHEN [Concomitant]
  8. ACETAMINOPHEN + PROMETHAZINE HCL [Concomitant]
  9. METOPROLOL [Concomitant]
  10. FIBERCON [Concomitant]
  11. FUROSEMIDE [Concomitant]
  12. POTASSIUM CHLORIDE [Concomitant]
  13. IRBESARTAN [Concomitant]
  14. MULTI-VITAMIN [Concomitant]
  15. ASPIRIN [Concomitant]
  16. ZOLOFT [Concomitant]
  17. VITAMIN E [Concomitant]
  18. MILK OF MAGNESIA TAB [Concomitant]

REACTIONS (2)
  - INTERNATIONAL NORMALISED RATIO INCREASED [None]
  - PROTHROMBIN TIME PROLONGED [None]
